FAERS Safety Report 12717943 (Version 4)
Quarter: 2016Q4

REPORT INFORMATION
  Report Type: Spontaneous
  Country: US (occurrence: US)
  Receive Date: 20160906
  Receipt Date: 20161107
  Transmission Date: 20170207
  Serious: Yes (Other)
  Sender: FDA-Public Use
  Company Number: US-BAYER-2016-171766

PATIENT
  Sex: Female
  Weight: 68.93 kg

DRUGS (1)
  1. MIRENA [Suspect]
     Active Substance: LEVONORGESTREL
     Indication: CONTRACEPTION
     Dosage: 20 MCG/24HR, CONT
     Route: 015
     Dates: start: 20140415, end: 20160818

REACTIONS (5)
  - Device dislocation [None]
  - Drug ineffective [None]
  - Device use issue [None]
  - Amenorrhoea [None]
  - Ectopic pregnancy with contraceptive device [None]
